FAERS Safety Report 8504547 (Version 2)
Quarter: 2013Q2

REPORT INFORMATION
  Report Type: Spontaneous
  Country: US (occurrence: None)
  Receive Date: 20120327
  Receipt Date: 20120709
  Transmission Date: 20140414
  Serious: Yes (Other)
  Sender: FDA-Public Use
  Company Number: PHHY2009US53298

PATIENT
  Age: 71 Year
  Sex: Male
  Weight: 126 kg

DRUGS (9)
  1. GLEEVEC (IMATINIB) TABLET, 100MG [Suspect]
     Indication: CHRONIC MYELOID LEUKAEMIA
     Dosage: 400 MG DAILY, ORAL; 200 MG DAILY, ORAL
     Route: 048
     Dates: start: 20090805
  2. ASPIRIN (ACETYLSALICYLIC ACID) [Concomitant]
  3. ISOSORBIDE MONONITRATE [Concomitant]
  4. LIPITOR [Concomitant]
  5. OMEPRAZOLE [Concomitant]
  6. METOPROLOL SUCCINATE [Concomitant]
  7. FOLIC ACID [Concomitant]
  8. GABAPENTIN [Concomitant]
  9. LASIX [Concomitant]

REACTIONS (4)
  - NEUROPATHY PERIPHERAL [None]
  - FLUID RETENTION [None]
  - MUSCLE SPASMS [None]
  - Dyspnoea [None]
